FAERS Safety Report 4293966-4 (Version None)
Quarter: 2004Q1

REPORT INFORMATION
  Report Type: 
  Country: None (occurrence: None)
  Receive Date: 20040210
  Receipt Date: 20040204
  Transmission Date: 20041129
  Serious: No
  Sender: FDA-Public Use
  Company Number: 2004UW01911

PATIENT
  Age: 58 Year
  Sex: Female

DRUGS (1)
  1. SEROQUEL [Suspect]
     Dosage: 300 MG PO
     Route: 048

REACTIONS (2)
  - CARDIAC ARREST [None]
  - PALPITATIONS [None]
